FAERS Safety Report 15012922 (Version 5)
Quarter: 2018Q3

REPORT INFORMATION
  Report Type: Spontaneous
  Country: US (occurrence: US)
  Receive Date: 20180614
  Receipt Date: 20180918
  Transmission Date: 20181010
  Serious: Yes (Hospitalization, Other)
  Sender: FDA-Public Use
  Company Number: US-TEVA-2018-US-908379

PATIENT
  Age: 53 Year
  Sex: Male
  Weight: 127 kg

DRUGS (6)
  1. GABAPENTIN. [Concomitant]
     Active Substance: GABAPENTIN
  2. NUVIGIL [Suspect]
     Active Substance: ARMODAFINIL
     Route: 065
  3. SYNRIBO [Suspect]
     Active Substance: OMACETAXINE MEPESUCCINATE
     Indication: CHRONIC MYELOID LEUKAEMIA
     Dosage: 6.34 MILLIGRAM DAILY;
     Route: 058
     Dates: start: 20180330
  4. FINASTERIDE. [Concomitant]
     Active Substance: FINASTERIDE
  5. AMLODIPINE [Concomitant]
     Active Substance: AMLODIPINE BESYLATE
     Route: 065
  6. SYNRIBO [Suspect]
     Active Substance: OMACETAXINE MEPESUCCINATE
     Dosage: RECEIVED 3 DAYS OF SYNRIBO
     Route: 058
     Dates: start: 20180609

REACTIONS (8)
  - Palpitations [Recovered/Resolved]
  - Drug dose omission [Recovered/Resolved]
  - Pneumonia [Unknown]
  - Infection [Not Recovered/Not Resolved]
  - Swelling [Not Recovered/Not Resolved]
  - Pain [Not Recovered/Not Resolved]
  - Rash [Not Recovered/Not Resolved]
  - Bone marrow transplant [Recovered/Resolved]

NARRATIVE: CASE EVENT DATE: 201804
